FAERS Safety Report 5264110-1 (Version None)
Quarter: 2007Q1

REPORT INFORMATION
  Report Type: 
  Country: None (occurrence: None)
  Receive Date: 20070313
  Receipt Date: 20070309
  Transmission Date: 20070707
  Serious: Yes (Death, Hospitalization)
  Sender: FDA-Public Use
  Company Number: UA-SANOFI-SYNTHELABO-F01200700332

PATIENT
  Sex: Female

DRUGS (4)
  1. FOLINIC ACID [Suspect]
     Route: 041
     Dates: start: 20060202, end: 20060203
  2. FLUOROURACIL [Suspect]
     Route: 041
     Dates: start: 20060202, end: 20060203
  3. CETUXIMAB [Suspect]
     Route: 041
     Dates: start: 20060210, end: 20060210
  4. OXALIPLATIN [Suspect]
     Indication: COLORECTAL CANCER METASTATIC
     Route: 041
     Dates: start: 20060202, end: 20060202

REACTIONS (4)
  - CARDIAC FAILURE [None]
  - COLITIS [None]
  - MUCOSAL INFLAMMATION [None]
  - STOMATITIS [None]
